FAERS Safety Report 6689400-7 (Version None)
Quarter: 2010Q2

REPORT INFORMATION
  Report Type: 
  Country: None (occurrence: None)
  Receive Date: 20100419
  Receipt Date: 20100419
  Transmission Date: 20101027
  Serious: Yes (Hospitalization)
  Sender: FDA-Public Use
  Company Number: None

PATIENT
  Age: 67 Year
  Sex: Male
  Weight: 90.7 kg

DRUGS (1)
  1. ASPIRIN [Suspect]
     Indication: HYPERTENSION
     Dosage: 81 MG EVERY DAY PO
     Route: 048
     Dates: end: 20100405

REACTIONS (4)
  - DIZZINESS [None]
  - DUODENAL ULCER [None]
  - HYPOTENSION [None]
  - UPPER GASTROINTESTINAL HAEMORRHAGE [None]
